FAERS Safety Report 9716304 (Version 1)
Quarter: 2013Q4

REPORT INFORMATION
  Report Type: Spontaneous
  Country: US (occurrence: US)
  Receive Date: 20131127
  Receipt Date: 20131127
  Transmission Date: 20140711
  Serious: Yes (Hospitalization)
  Sender: FDA-Public Use
  Company Number: US-MALLINCKRODT-T201304954

PATIENT
  Age: 48 Year
  Sex: Female

DRUGS (2)
  1. MORPHINE SULFATE [Suspect]
     Indication: PRODUCT USED FOR UNKNOWN INDICATION
     Dosage: 240 MG, MAXIMUM POSSIBLE
     Route: 048
  2. FENTANYL [Suspect]
     Indication: PRODUCT USED FOR UNKNOWN INDICATION
     Dosage: 160 MG, MAXIMUM POSSIBLE
     Route: 048

REACTIONS (5)
  - Accidental exposure to product [Unknown]
  - Respiratory arrest [Unknown]
  - Bradycardia [Unknown]
  - Somnolence [Unknown]
  - Lethargy [Unknown]
